FAERS Safety Report 5690769-0 (Version None)
Quarter: 2008Q2

REPORT INFORMATION
  Report Type: 
  Country: None (occurrence: None)
  Receive Date: 20080401
  Receipt Date: 20080324
  Transmission Date: 20081010
  Serious: Yes (Other)
  Sender: FDA-Public Use
  Company Number: A0708130A

PATIENT
  Age: 50 Year
  Sex: Female

DRUGS (16)
  1. ARIXTRA [Suspect]
     Indication: PULMONARY EMBOLISM
     Dosage: 7.5MG PER DAY
     Route: 058
     Dates: start: 20080102
  2. NORCO [Concomitant]
  3. METFORMIN HCL [Concomitant]
  4. CIMETIDINE [Concomitant]
  5. CLONIDINE [Concomitant]
  6. LEVOTHYROXINE SODIUM [Concomitant]
  7. UNKNOWN [Concomitant]
  8. XANAX [Concomitant]
  9. HYZAAR [Concomitant]
  10. XOPENEX [Concomitant]
  11. AMINO ACID INJ [Concomitant]
  12. GUAIFENESIN [Concomitant]
  13. NORCO [Concomitant]
  14. PANCREATIC ENZYMES [Concomitant]
  15. CLONIDINE [Concomitant]
  16. ACIDOPHILUS [Concomitant]

REACTIONS (8)
  - ASTHENIA [None]
  - DECREASED ACTIVITY [None]
  - FEAR [None]
  - HAEMORRHAGIC DISORDER [None]
  - INJECTION SITE BRUISING [None]
  - PHARMACEUTICAL PRODUCT COMPLAINT [None]
  - PYREXIA [None]
  - VIRAL INFECTION [None]
